FAERS Safety Report 6264526-0 (Version None)
Quarter: 2009Q3

REPORT INFORMATION
  Report Type: 
  Country: None (occurrence: None)
  Receive Date: 20090710
  Receipt Date: 20090702
  Transmission Date: 20100115
  Serious: Yes (Other)
  Sender: FDA-Public Use
  Company Number: US-JNJFOC-20090701690

PATIENT
  Age: 12 Year
  Sex: Male

DRUGS (3)
  1. RISPERDAL [Suspect]
     Indication: DRUG USE FOR UNKNOWN INDICATION
     Route: 048
  2. DEPAKOTE [Concomitant]
     Route: 048
  3. CLONIDINE [Concomitant]
     Route: 048

REACTIONS (4)
  - DELIRIUM [None]
  - DYSTONIA [None]
  - HALLUCINATION [None]
  - MUSCLE RIGIDITY [None]
